FAERS Safety Report 8260420-4 (Version None)
Quarter: 2012Q2

REPORT INFORMATION
  Report Type: 
  Country: None (occurrence: None)
  Receive Date: 20120404
  Receipt Date: 20120329
  Transmission Date: 20120825
  Serious: Yes (Other)
  Sender: FDA-Public Use
  Company Number: PHHY2012FR027219

PATIENT
  Sex: Female

DRUGS (3)
  1. METHOTREXATE [Concomitant]
  2. PREDNISONE TAB [Concomitant]
  3. DOXYCYCLINE SANDOZ [Suspect]
     Indication: ROSACEA
     Dosage: 100 MG, UNK
     Route: 048
     Dates: end: 20120323

REACTIONS (1)
  - CHOLESTASIS [None]
